FAERS Safety Report 4974449-2 (Version None)
Quarter: 2006Q2

REPORT INFORMATION
  Report Type: 
  Country: None (occurrence: None)
  Receive Date: 20060410
  Receipt Date: 20060404
  Transmission Date: 20061013
  Serious: Yes (Other)
  Sender: FDA-Public Use
  Company Number: 2005-12-0631

PATIENT
  Age: 39 Year
  Sex: Male
  Weight: 80 kg

DRUGS (4)
  1. TEMODAL [Suspect]
     Indication: GLIOBLASTOMA
     Dosage: 150-390MG QD* ORAL
     Route: 048
     Dates: start: 20051110, end: 20051114
  2. TEMODAL [Suspect]
     Indication: GLIOBLASTOMA
     Dosage: 150-390MG QD* ORAL
     Route: 048
     Dates: start: 20051208, end: 20051212
  3. TEMODAL [Suspect]
     Indication: GLIOBLASTOMA
     Dosage: 150-390MG QD* ORAL
     Route: 048
     Dates: start: 20051110, end: 20060130
  4. TEMODAL [Suspect]
     Indication: GLIOBLASTOMA
     Dosage: 150-390MG QD* ORAL
     Route: 048
     Dates: start: 20060126, end: 20060130

REACTIONS (2)
  - RASH PRURITIC [None]
  - RASH PUSTULAR [None]
